FAERS Safety Report 25201984 (Version 1)
Quarter: 2025Q2

REPORT INFORMATION
  Report Type: Spontaneous
  Country: BR (occurrence: BR)
  Receive Date: 20250416
  Receipt Date: 20250416
  Transmission Date: 20250717
  Serious: Yes (Hospitalization)
  Sender: SANDOZ
  Company Number: BR-002147023-NVSC2023BR234582

PATIENT
  Sex: Male

DRUGS (1)
  1. BUDESONIDE\FORMOTEROL FUMARATE [Suspect]
     Active Substance: BUDESONIDE\FORMOTEROL FUMARATE
     Indication: Asthma
     Dosage: UNK (400) (12/400  60+60) QD (IN MORNING)
     Route: 065
     Dates: start: 2014

REACTIONS (7)
  - COVID-19 [Recovered/Resolved]
  - Influenza [Unknown]
  - Sneezing [Unknown]
  - Fatigue [Unknown]
  - Lung disorder [Not Recovered/Not Resolved]
  - Nausea [Unknown]
  - Cough [Not Recovered/Not Resolved]

NARRATIVE: CASE EVENT DATE: 20200101
